FAERS Safety Report 6560497-8 (Version None)
Quarter: 2010Q1

REPORT INFORMATION
  Report Type: 
  Country: None (occurrence: None)
  Receive Date: 20100129
  Receipt Date: 20050224
  Transmission Date: 20100710
  Serious: No
  Sender: FDA-Public Use
  Company Number: US-ALLERGAN-200502039

PATIENT
  Sex: Female

DRUGS (1)
  1. BOTOX COSMETIC [Suspect]
     Indication: DRUG USE FOR UNKNOWN INDICATION
     Route: 030

REACTIONS (3)
  - INJECTION SITE ERYTHEMA [None]
  - INJECTION SITE OEDEMA [None]
  - INJECTION SITE PAIN [None]
